FAERS Safety Report 4657532-0 (Version None)
Quarter: 2005Q2

REPORT INFORMATION
  Report Type: 
  Country: None (occurrence: None)
  Receive Date: 20050405
  Receipt Date: 20041227
  Transmission Date: 20051028
  Serious: Yes (Other)
  Sender: FDA-Public Use
  Company Number: 2004077409

PATIENT
  Age: 51 Year
  Sex: Female

DRUGS (5)
  1. GEODON [Suspect]
     Indication: SCHIZOAFFECTIVE DISORDER
     Dosage: 80 MG (1 IN 1 D),ORAL
     Route: 048
     Dates: start: 20010310
  2. LEVETIRACETAM [Suspect]
     Indication: SCHIZOAFFECTIVE DISORDER
     Dosage: 500 MG (1 IN 1 D),ORAL
     Route: 048
     Dates: start: 20040821
  3. TRAZODONE HCL [Concomitant]
  4. CLONAZEPAM [Concomitant]
  5. PANTOPRAZOLE SODIUM [Concomitant]

REACTIONS (2)
  - DIZZINESS [None]
  - SYNCOPE [None]
